FAERS Safety Report 4958574-8 (Version None)
Quarter: 2006Q1

REPORT INFORMATION
  Report Type: 
  Country: None (occurrence: None)
  Receive Date: 20060127
  Receipt Date: 20050811
  Transmission Date: 20060701
  Serious: Yes (Hospitalization, Other)
  Sender: FDA-Public Use
  Company Number: 05-08-1435

PATIENT
  Age: 52 Year
  Sex: Male

DRUGS (1)
  1. CLOZAPINE [Suspect]
     Dosage: 350MG QD, ORAL
     Route: 048
     Dates: start: 20050315

REACTIONS (1)
  - PNEUMONIA [None]
